FAERS Safety Report 9618903 (Version 2)
Quarter: 2013Q4

REPORT INFORMATION
  Report Type: Spontaneous
  Country: AU (occurrence: AU)
  Receive Date: 20131014
  Receipt Date: 20131024
  Transmission Date: 20140711
  Serious: Yes (Other)
  Sender: FDA-Public Use
  Company Number: AU-RANBAXY-2013RR-74011

PATIENT
  Age: 32 Year
  Sex: Female

DRUGS (4)
  1. FLUOXETINE [Suspect]
     Indication: DEPRESSION
     Dosage: 200 MG/DAY
     Route: 065
  2. FLUOXETINE [Suspect]
     Indication: POST-TRAUMATIC STRESS DISORDER
  3. VALPROIC ACID [Interacting]
     Indication: DEPRESSION
     Dosage: 500 MG, BID
     Route: 065
  4. VALPROIC ACID [Interacting]
     Indication: POST-TRAUMATIC STRESS DISORDER

REACTIONS (5)
  - Convulsion [Recovered/Resolved]
  - Urinary incontinence [Unknown]
  - Acute psychosis [Recovered/Resolved]
  - Delusion of grandeur [Unknown]
  - Drug interaction [Unknown]
